FAERS Safety Report 13367601 (Version 1)
Quarter: 2017Q1

REPORT INFORMATION
  Report Type: Spontaneous
  Country: US (occurrence: US)
  Receive Date: 20170323
  Receipt Date: 20170323
  Transmission Date: 20170429
  Serious: Yes (Disabling, Other)
  Sender: FDA-Public Use
  Company Number: None

PATIENT
  Sex: Male

DRUGS (12)
  1. BREAKFAST ESSENTIALS [Concomitant]
  2. CONCERTA [Concomitant]
     Active Substance: METHYLPHENIDATE HYDROCHLORIDE
  3. MIRALAX [Suspect]
     Active Substance: POLYETHYLENE GLYCOL 3350
     Indication: CONSTIPATION
     Route: 048
  4. ALBUTEROL. [Concomitant]
     Active Substance: ALBUTEROL
  5. INHALER [Concomitant]
     Active Substance: UNSPECIFIED INGREDIENT
  6. NEBULIZER [Concomitant]
     Active Substance: DEVICE
  7. EQUATE GUMMY VITAMINS [Concomitant]
  8. SODIUM DOCUSATE [Concomitant]
     Active Substance: DOCUSATE SODIUM
  9. MIRALAX [Suspect]
     Active Substance: POLYETHYLENE GLYCOL 3350
     Indication: CONSTIPATION
     Route: 048
  10. RITALIN [Concomitant]
     Active Substance: METHYLPHENIDATE HYDROCHLORIDE
  11. DESMOPRESSIN [Concomitant]
     Active Substance: DESMOPRESSIN
  12. CHILDREN^S AIRBORNE GUMMIES [Concomitant]

REACTIONS (8)
  - Myopia [None]
  - Affective disorder [None]
  - Headache [None]
  - Astigmatism [None]
  - Oppositional defiant disorder [None]
  - Enuresis [None]
  - Attention deficit/hyperactivity disorder [None]
  - Weight gain poor [None]
